FAERS Safety Report 18960344 (Version 1)
Quarter: 2021Q1

REPORT INFORMATION
  Report Type: Spontaneous
  Country: US (occurrence: US)
  Receive Date: 20210302
  Receipt Date: 20210302
  Transmission Date: 20210420
  Serious: No
  Sender: FDA-Public Use
  Company Number: US-ASTRAZENECA-2021A085089

PATIENT
  Sex: Female
  Weight: 68 kg

DRUGS (1)
  1. OMEPRAZOLE. [Suspect]
     Active Substance: OMEPRAZOLE
     Indication: THROAT IRRITATION
     Route: 048
     Dates: start: 202102

REACTIONS (1)
  - Dysphonia [Unknown]
